FAERS Safety Report 7518039 (Version 36)
Quarter: 2018Q3

REPORT INFORMATION
  Report Type: Report from Study
  Country: CA (occurrence: CA)
  Receive Date: 20100802
  Receipt Date: 20180821
  Transmission Date: 20181010
  Serious: Yes (Death, Hospitalization, Other)
  Sender: FDA-Public Use
  Company Number: PHHY2010CA47978

PATIENT
  Age: 73 Year
  Sex: Female

DRUGS (15)
  1. SOTALOL. [Concomitant]
     Active Substance: SOTALOL
     Indication: ARRHYTHMIA
     Route: 065
  2. SANDOSTATIN LAR DEPOT [Suspect]
     Active Substance: OCTREOTIDE ACETATE
     Indication: CARCINOID TUMOUR
     Dosage: 20 MG, QMO (EVERY 4 WEEKS)
     Route: 030
     Dates: start: 20100705
  3. SANDOSTATIN LAR DEPOT [Suspect]
     Active Substance: OCTREOTIDE ACETATE
     Dosage: 20 MG, QMO
     Route: 030
     Dates: start: 20101029
  4. SANDOSTATIN LAR DEPOT [Suspect]
     Active Substance: OCTREOTIDE ACETATE
     Dosage: 30 MG, QMO (ONCE A MONTH)
     Route: 030
     Dates: start: 20110623
  5. SANDOSTATIN LAR DEPOT [Suspect]
     Active Substance: OCTREOTIDE ACETATE
     Dosage: 30 MG, QMO (EVERY 4 WEEKS)
     Route: 030
     Dates: start: 20130104
  6. SANDOSTATIN LAR DEPOT [Suspect]
     Active Substance: OCTREOTIDE ACETATE
     Dosage: 60 MG, QMO
     Route: 030
  7. WARFARIN [Concomitant]
     Active Substance: WARFARIN
     Indication: ATRIAL FIBRILLATION
     Dosage: 5 MG, QD
     Route: 065
  8. OXYCONTIN [Concomitant]
     Active Substance: OXYCODONE HYDROCHLORIDE
     Indication: PRODUCT USED FOR UNKNOWN INDICATION
     Route: 065
  9. SANDOSTATIN LAR DEPOT [Suspect]
     Active Substance: OCTREOTIDE ACETATE
     Dosage: 30 MG, BIW (EVERY 2 WEEKS)
     Route: 030
     Dates: start: 20120523
  10. LOPERAMIDE [Concomitant]
     Active Substance: LOPERAMIDE
     Indication: PRODUCT USED FOR UNKNOWN INDICATION
     Route: 065
  11. THYROXINE [Concomitant]
     Active Substance: LEVOTHYROXINE
     Indication: PRODUCT USED FOR UNKNOWN INDICATION
     Dosage: UNK
     Route: 048
  12. SANDOSTATIN LAR DEPOT [Suspect]
     Active Substance: OCTREOTIDE ACETATE
     Dosage: 30 MG, QMO (ONCE A MONTH)
     Route: 030
     Dates: start: 20141109
  13. COUMADIN [Concomitant]
     Active Substance: WARFARIN SODIUM
     Dosage: 2.5 MG, QD
     Route: 065
  14. COUMADIN [Concomitant]
     Active Substance: WARFARIN SODIUM
     Indication: PRODUCT USED FOR UNKNOWN INDICATION
     Dosage: 5 MG, (5 MG 2 DAYS AND 2.5 MG 5 DAYS)
     Route: 065
  15. FOSINOPRIL [Concomitant]
     Active Substance: FOSINOPRIL
     Indication: PRODUCT USED FOR UNKNOWN INDICATION
     Dosage: 20 MG, UNK
     Route: 065

REACTIONS (53)
  - Syncope [Unknown]
  - Injection site discolouration [Unknown]
  - Fall [Unknown]
  - Cystitis [Unknown]
  - Nausea [Unknown]
  - Pulmonary embolism [Fatal]
  - Atrial fibrillation [Unknown]
  - Gallbladder disorder [Unknown]
  - Myalgia [Unknown]
  - Haematoma [Unknown]
  - Abdominal pain [Unknown]
  - Injection site mass [Not Recovered/Not Resolved]
  - Injury associated with device [Unknown]
  - Haemorrhage [Recovered/Resolved]
  - Toxicity to various agents [Recovered/Resolved]
  - Headache [Unknown]
  - Cough [Recovered/Resolved]
  - Flushing [Unknown]
  - Laceration [Unknown]
  - Pollakiuria [Unknown]
  - Blood pressure increased [Unknown]
  - Heart rate increased [Unknown]
  - Cataract [Unknown]
  - Hepatic lesion [Unknown]
  - International normalised ratio increased [Unknown]
  - Hot flush [Not Recovered/Not Resolved]
  - Upper respiratory tract infection [Unknown]
  - Abdominal pain lower [Unknown]
  - Heart rate decreased [Unknown]
  - Malaise [Unknown]
  - Asthenia [Unknown]
  - Dyspnoea [Unknown]
  - Injection site pain [Not Recovered/Not Resolved]
  - Hypertension [Unknown]
  - Respiratory tract congestion [Unknown]
  - Rales [Unknown]
  - Diarrhoea [Unknown]
  - Skin discolouration [Unknown]
  - Cholelithiasis [Unknown]
  - Influenza [Unknown]
  - Pyrexia [Unknown]
  - Chest pain [Recovered/Resolved]
  - Musculoskeletal chest pain [Unknown]
  - Inappropriate schedule of drug administration [Unknown]
  - Back pain [Unknown]
  - Constipation [Unknown]
  - Pain in extremity [Unknown]
  - Joint injury [Unknown]
  - Vomiting [Unknown]
  - Contusion [Not Recovered/Not Resolved]
  - 5-hydroxyindolacetic acid increased [Unknown]
  - Feeling hot [Unknown]
  - Arthralgia [Unknown]

NARRATIVE: CASE EVENT DATE: 20121005
